FAERS Safety Report 6600342-5 (Version None)
Quarter: 2010Q1

REPORT INFORMATION
  Report Type: 
  Country: None (occurrence: None)
  Receive Date: 20100224
  Receipt Date: 20100223
  Transmission Date: 20100710
  Serious: Yes (Hospitalization)
  Sender: FDA-Public Use
  Company Number: TR-ABBOTT-10P-161-0626313-00

PATIENT
  Age: 48 Year
  Sex: Male
  Weight: 100 kg

DRUGS (2)
  1. TARKA [Suspect]
     Indication: HYPERTENSION
     Dosage: 4/240 MILLIGRAMS
     Route: 048
     Dates: start: 20080101, end: 20100127
  2. METFORMIN [Concomitant]
     Indication: DIABETES MELLITUS
     Dosage: 2 X 1
     Route: 048
     Dates: start: 20080101

REACTIONS (2)
  - HEMIPLEGIA [None]
  - VERTIGO [None]
